FAERS Safety Report 18785976 (Version 1)
Quarter: 2021Q1

REPORT INFORMATION
  Report Type: Spontaneous
  Country: US (occurrence: US)
  Receive Date: 20210125
  Receipt Date: 20210125
  Transmission Date: 20210419
  Serious: No
  Sender: FDA-Public Use
  Company Number: US-ROCHE-2605607

PATIENT
  Sex: Female
  Weight: 76.4 kg

DRUGS (3)
  1. REMODULIN [Suspect]
     Active Substance: TREPROSTINIL
     Indication: PULMONARY ARTERIAL HYPERTENSION
     Route: 041
     Dates: start: 20171128
  2. RITUXAN [Suspect]
     Active Substance: RITUXIMAB
     Indication: PRODUCT USED FOR UNKNOWN INDICATION
     Route: 065
  3. OPSUMIT [Concomitant]
     Active Substance: MACITENTAN

REACTIONS (5)
  - Fluid retention [Unknown]
  - Intentional product use issue [Unknown]
  - Off label use [Unknown]
  - Headache [Unknown]
  - Abdominal distension [Unknown]
